FAERS Safety Report 10184028 (Version 2)
Quarter: 2014Q2

REPORT INFORMATION
  Report Type: Report from Study
  Country: DE (occurrence: DE)
  Receive Date: 20140520
  Receipt Date: 20140520
  Transmission Date: 20141212
  Serious: Yes (Hospitalization)
  Sender: FDA-Public Use
  Company Number: DE-ROCHE-1344778

PATIENT
  Age: 59 Year
  Sex: Female
  Weight: 68.9 kg

DRUGS (3)
  1. BEVACIZUMAB [Suspect]
     Indication: OVARIAN CANCER
     Dosage: DATE OF LAST DOSE PRIOR TO SAE: 30/DEC/2013
     Route: 042
     Dates: start: 20120622
  2. CARBOPLATIN [Suspect]
     Indication: OVARIAN CANCER
     Dosage: DATE OF LAST DOSE PRIOR TO SAE: 02/OCT/2012?DAILY DOSE: AUC 5
     Route: 042
     Dates: start: 20120622
  3. PACLITAXEL [Suspect]
     Indication: OVARIAN CANCER
     Dosage: DATE OF LAST DOSE PRIOR TO SAE: 02/OCT/2012
     Route: 042
     Dates: start: 20120622

REACTIONS (1)
  - General physical health deterioration [Not Recovered/Not Resolved]
